FAERS Safety Report 5952617-0 (Version None)
Quarter: 2008Q4

REPORT INFORMATION
  Report Type: 
  Country: None (occurrence: None)
  Receive Date: 20081031
  Receipt Date: 20080422
  Transmission Date: 20090506
  Serious: Yes (Other)
  Sender: FDA-Public Use
  Company Number: US-WYE-H03788408

PATIENT
  Age: 67 Year
  Sex: Female
  Weight: 53.57 kg

DRUGS (11)
  1. PREMARIN [Suspect]
     Indication: HORMONE REPLACEMENT THERAPY
     Dosage: VAGINAL
     Dates: start: 19981101, end: 19981101
  2. PREMARIN [Suspect]
     Indication: VULVOVAGINAL DRYNESS
     Dosage: VAGINAL
     Dates: start: 19981101, end: 19981101
  3. EVISTA [Suspect]
     Indication: HOT FLUSH
     Dosage: 60 MG
     Dates: start: 20000501, end: 20000701
  4. OGEN [Suspect]
     Indication: HORMONE REPLACEMENT THERAPY
     Dosage: 0.625 MG
     Dates: start: 19921101, end: 20000401
  5. OGEN [Suspect]
     Indication: HOT FLUSH
     Dosage: 0.625 MG
     Dates: start: 19921101, end: 20000401
  6. OGEN [Suspect]
     Indication: HORMONE REPLACEMENT THERAPY
     Dosage: 0.625 MG
     Dates: start: 20000701, end: 20010701
  7. OGEN [Suspect]
     Indication: HOT FLUSH
     Dosage: 0.625 MG
     Dates: start: 20000701, end: 20010701
  8. PROVERA [Suspect]
     Indication: HORMONE REPLACEMENT THERAPY
     Dosage: 2.5 MG
     Dates: start: 19921101, end: 20000401
  9. PROVERA [Suspect]
     Indication: HOT FLUSH
     Dosage: 2.5 MG
     Dates: start: 19921101, end: 20000401
  10. PROVERA [Suspect]
     Indication: HORMONE REPLACEMENT THERAPY
     Dosage: 2.5 MG
     Dates: start: 20000701, end: 20010701
  11. PROVERA [Suspect]
     Indication: HOT FLUSH
     Dosage: 2.5 MG
     Dates: start: 20000701, end: 20010701

REACTIONS (2)
  - BREAST CANCER [None]
  - PAIN IN EXTREMITY [None]
